FAERS Safety Report 7072153-0 (Version None)
Quarter: 2010Q4

REPORT INFORMATION
  Report Type: 
  Country: None (occurrence: None)
  Receive Date: 20101029
  Receipt Date: 20091209
  Transmission Date: 20110411
  Serious: No
  Sender: FDA-Public Use
  Company Number: A0834314A

PATIENT
  Age: 63 Year
  Sex: Female

DRUGS (4)
  1. ADVAIR DISKUS 100/50 [Suspect]
     Indication: ASTHMA
     Dosage: 1PUFF TWICE PER DAY
     Route: 055
     Dates: start: 20080101
  2. SYNTHROID [Concomitant]
  3. BENICAR [Concomitant]
  4. VITAMINS [Concomitant]

REACTIONS (3)
  - BONE DENSITY DECREASED [None]
  - BONE PAIN [None]
  - MYALGIA [None]
